APPROVED DRUG PRODUCT: MINOCIN
Active Ingredient: MINOCYCLINE HYDROCHLORIDE
Strength: EQ 75MG BASE **Federal Register determination that product was not discontinued or withdrawn for safety or effectiveness reasons**
Dosage Form/Route: CAPSULE;ORAL
Application: N050649 | Product #003
Applicant: BAUSCH HEALTH US LLC
Approved: Feb 12, 2001 | RLD: Yes | RS: No | Type: DISCN